FAERS Safety Report 6913711-0 (Version None)
Quarter: 2010Q3

REPORT INFORMATION
  Report Type: 
  Country: None (occurrence: None)
  Receive Date: 20100806
  Receipt Date: 20100806
  Transmission Date: 20110219
  Serious: Yes (Life-Threatening, Hospitalization)
  Sender: FDA-Public Use
  Company Number: None

PATIENT
  Sex: Male
  Weight: 95.2554 kg

DRUGS (2)
  1. TERAZOSIN HCL [Suspect]
     Indication: BLOOD PRESSURE DECREASED
     Dosage: 1 PILL AT NIGHT MOUTH
     Route: 048
     Dates: start: 20100626, end: 20100627
  2. TERAZOSIN HCL [Suspect]
     Indication: BLOOD PRESSURE DECREASED
     Dosage: 1 PILL AT NIGHT MOUTH
     Route: 048
     Dates: start: 20100629

REACTIONS (3)
  - BLOOD PRESSURE INCREASED [None]
  - MEDICATION ERROR [None]
  - PRODUCT QUALITY ISSUE [None]
